FAERS Safety Report 7551399 (Version 2)
Quarter: 2013Q4

REPORT INFORMATION
  Report Type: Spontaneous
  Country: US (occurrence: US)
  Receive Date: 20100824
  Receipt Date: 20131230
  Transmission Date: 20140711
  Serious: Yes (Hospitalization, Other)
  Sender: FDA-Public Use
  Company Number: US-JNJFOC-20100806379

PATIENT
  Age: 42 Year
  Sex: Male
  Weight: 95.26 kg

DRUGS (1)
  1. DURAGESIC [Suspect]
     Indication: ANALGESIC THERAPY
     Dosage: 100 UG/HR+100 UG/HR
     Route: 062
     Dates: start: 2009

REACTIONS (12)
  - Coma [Recovered/Resolved]
  - Dyspnoea [Recovered/Resolved]
  - Chest discomfort [Recovered/Resolved]
  - Application site warmth [Recovered/Resolved]
  - Product quality issue [Recovered/Resolved]
  - Fall [Recovered/Resolved]
  - Arthralgia [Unknown]
  - Muscle spasms [Unknown]
  - Pain [Unknown]
  - Nausea [Recovered/Resolved]
  - Lethargy [Recovered/Resolved]
  - Wrong technique in drug usage process [Recovered/Resolved]
